FAERS Safety Report 6024609-7 (Version None)
Quarter: 2008Q4

REPORT INFORMATION
  Report Type: 
  Country: None (occurrence: None)
  Receive Date: 20081224
  Receipt Date: 20080925
  Transmission Date: 20090506
  Serious: Yes (Other)
  Sender: FDA-Public Use
  Company Number: 1000003240

PATIENT
  Sex: Male

DRUGS (2)
  1. MEMANTINE HCL [Suspect]
     Indication: DEMENTIA ALZHEIMER'S TYPE
     Dosage: 1 DOSAGE, FORMS (0.5 DOSAGE FORMS, 2 IN 1 D), ORAL; 2 DOSAGE FORMS (1 DOSAGE FORMS, 2 IN 1 D), ORAL
     Route: 048
  2. REMINYL (TABLETS) [Concomitant]

REACTIONS (2)
  - CONVULSION [None]
  - GAZE PALSY [None]
